FAERS Safety Report 22267135 (Version 1)
Quarter: 2023Q2

REPORT INFORMATION
  Report Type: Spontaneous
  Country: US (occurrence: None)
  Receive Date: 20230427
  Receipt Date: 20230427
  Transmission Date: 20230721
  Serious: Yes (Death)
  Sender: FDA-Public Use
  Company Number: None

PATIENT
  Age: 84 Year
  Sex: Female

DRUGS (2)
  1. FULVESTRANT [Suspect]
     Active Substance: FULVESTRANT
     Indication: Breast cancer metastatic
     Dosage: OTHER QUANTITY : 250MG/5ML;?OTHER FREQUENCY : Q 28DAYS;?
     Route: 058
     Dates: start: 20211215
  2. XGEVA [Suspect]
     Active Substance: DENOSUMAB
     Indication: Breast cancer
     Dosage: OTHER QUANTITY : 120MG/1.7ML;?OTHER FREQUENCY : Q 3MONTHS;?
     Route: 058
     Dates: start: 20211214

REACTIONS (1)
  - Death [None]
